FAERS Safety Report 5529411-8 (Version None)
Quarter: 2007Q4

REPORT INFORMATION
  Report Type: 
  Country: None (occurrence: None)
  Receive Date: 20071129
  Receipt Date: 20071120
  Transmission Date: 20080405
  Serious: Yes (Hospitalization)
  Sender: FDA-Public Use
  Company Number: US-BAYER-200713800BCC

PATIENT
  Age: 62 Year
  Sex: Male
  Weight: 79 kg

DRUGS (2)
  1. ALKA-SELTZER PLUS COLD TABLETS [Suspect]
     Indication: NASOPHARYNGITIS
     Route: 048
     Dates: start: 19970101, end: 19970101
  2. AMLODIPINE [Concomitant]
     Indication: HYPERTENSION

REACTIONS (2)
  - EPISTAXIS [None]
  - HYPERTENSION [None]
